FAERS Safety Report 14118401 (Version 1)
Quarter: 2017Q4

REPORT INFORMATION
  Report Type: Spontaneous
  Country: US (occurrence: US)
  Receive Date: 20171024
  Receipt Date: 20171024
  Transmission Date: 20180321
  Serious: No
  Sender: FDA-Public Use
  Company Number: US-BRISTOL-MYERS SQUIBB COMPANY-BMS-2017-093372

PATIENT
  Sex: Male
  Weight: 90.7 kg

DRUGS (3)
  1. PREDNISONE. [Concomitant]
     Active Substance: PREDNISONE
     Indication: PRODUCT USED FOR UNKNOWN INDICATION
     Route: 065
  2. ATORVASTATIN [Concomitant]
     Active Substance: ATORVASTATIN
     Indication: PRODUCT USED FOR UNKNOWN INDICATION
     Route: 065
  3. YERVOY [Suspect]
     Active Substance: IPILIMUMAB
     Indication: MALIGNANT MELANOMA
     Route: 065
     Dates: start: 201705, end: 201707

REACTIONS (8)
  - Balance disorder [Unknown]
  - Thyroid disorder [Unknown]
  - Dizziness [Unknown]
  - Gait disturbance [Unknown]
  - Weight decreased [Unknown]
  - Malaise [Unknown]
  - Diarrhoea [Unknown]
  - Muscular weakness [Unknown]
